FAERS Safety Report 6807563-7 (Version None)
Quarter: 2010Q2

REPORT INFORMATION
  Report Type: 
  Country: None (occurrence: None)
  Receive Date: 20100629
  Receipt Date: 20090121
  Transmission Date: 20101027
  Serious: No
  Sender: FDA-Public Use
  Company Number: US-PFIZER INC-2008096482

PATIENT
  Sex: Female
  Weight: 54.545 kg

DRUGS (1)
  1. MEDROL [Suspect]
     Indication: FACIAL PALSY
     Dates: start: 20081112

REACTIONS (1)
  - DYSGEUSIA [None]
